FAERS Safety Report 26177465 (Version 1)
Quarter: 2025Q4

REPORT INFORMATION
  Report Type: Spontaneous
  Country: EU (occurrence: EU)
  Receive Date: 20251219
  Receipt Date: 20251219
  Transmission Date: 20260117
  Serious: Yes (Hospitalization, Other)
  Sender: BAXTER
  Company Number: None

PATIENT
  Age: 56 Year
  Sex: Female

DRUGS (4)
  1. CYCLOPHOSPHAMIDE [Suspect]
     Active Substance: CYCLOPHOSPHAMIDE
     Indication: Scleroderma
     Dosage: UNK
     Route: 065
     Dates: start: 201104, end: 201106
  2. CELLCEPT [Suspect]
     Active Substance: MYCOPHENOLATE MOFETIL
     Indication: Scleroderma
     Dosage: 2 G, QD
     Route: 048
     Dates: start: 20110915
  3. PREDNISOLONE SODIUM METAZOATE [Suspect]
     Active Substance: PREDNISOLONE SODIUM METAZOATE
     Indication: Scleroderma
     Route: 065
     Dates: start: 2011
  4. BOSENTAN [Concomitant]
     Active Substance: BOSENTAN
     Indication: Pulmonary arterial hypertension
     Route: 065

REACTIONS (1)
  - Squamous cell carcinoma of the tongue [Not Recovered/Not Resolved]

NARRATIVE: CASE EVENT DATE: 20251010
